FAERS Safety Report 9837613 (Version 2)
Quarter: 2014Q1

REPORT INFORMATION
  Report Type: Spontaneous
  Country: US (occurrence: US)
  Receive Date: 20140123
  Receipt Date: 20140212
  Transmission Date: 20141002
  Serious: No
  Sender: FDA-Public Use
  Company Number: US-009507513-1401USA010131

PATIENT
  Sex: 0

DRUGS (1)
  1. EMEND [Suspect]
     Dosage: 125/80 (UNITS UNSPECIFIED) TAKEN AS DIRECTED
     Route: 048
     Dates: start: 201401

REACTIONS (3)
  - Drug dose omission [Unknown]
  - Product packaging quantity issue [Unknown]
  - No adverse event [Unknown]
